FAERS Safety Report 17397200 (Version 1)
Quarter: 2020Q1

REPORT INFORMATION
  Report Type: Spontaneous
  Country: US (occurrence: US)
  Receive Date: 20200210
  Receipt Date: 20200210
  Transmission Date: 20200409
  Serious: No
  Sender: FDA-Public Use
  Company Number: NVSC2020US033707

PATIENT
  Sex: Female

DRUGS (1)
  1. MYCOPHENOLIC ACID. [Suspect]
     Active Substance: MYCOPHENOLIC ACID
     Indication: PALMOPLANTAR PUSTULOSIS
     Dosage: UNK
     Route: 065
     Dates: start: 200808, end: 200808

REACTIONS (2)
  - Product use in unapproved indication [Unknown]
  - Palmoplantar pustulosis [Unknown]
